FAERS Safety Report 13591419 (Version 4)
Quarter: 2017Q2

REPORT INFORMATION
  Report Type: Spontaneous
  Country: US (occurrence: US)
  Receive Date: 20170529
  Receipt Date: 20170627
  Transmission Date: 20170830
  Serious: Yes (Death)
  Sender: FDA-Public Use
  Company Number: US-PFIZER INC-2017230035

PATIENT
  Age: 55 Year
  Sex: Female
  Weight: 56.69 kg

DRUGS (3)
  1. IBRANCE [Suspect]
     Active Substance: PALBOCICLIB
     Indication: BREAST CANCER METASTATIC
     Dosage: 75 MG, CYCLIC (D1-21 Q28 DAYS)
     Route: 048
     Dates: start: 201605
  2. IBRANCE [Suspect]
     Active Substance: PALBOCICLIB
     Dosage: 75 MG, CYCLIC (D1-21 Q28 DAYS)
     Route: 048
     Dates: start: 20170520
  3. IBRANCE [Suspect]
     Active Substance: PALBOCICLIB
     Dosage: 75 MG, CYCLIC (D1-21 Q28 DAYS)
     Route: 048
     Dates: start: 20170519, end: 201706

REACTIONS (5)
  - Back pain [Not Recovered/Not Resolved]
  - Death [Fatal]
  - Fluid retention [Unknown]
  - Dyspnoea [Unknown]
  - Dizziness [Unknown]
